FAERS Safety Report 7015571-9 (Version None)
Quarter: 2010Q3

REPORT INFORMATION
  Report Type: 
  Country: None (occurrence: None)
  Receive Date: 20100927
  Receipt Date: 20100924
  Transmission Date: 20110219
  Serious: Yes (Life-Threatening, Hospitalization)
  Sender: FDA-Public Use
  Company Number: FR-JNJFOC-20100907135

PATIENT
  Sex: Male

DRUGS (2)
  1. RISPERDAL [Suspect]
     Indication: PARANOIA
     Route: 048
  2. STRESAM [Suspect]
     Indication: PRODUCT USED FOR UNKNOWN INDICATION
     Route: 065

REACTIONS (5)
  - DISTURBANCE IN ATTENTION [None]
  - HYPONATRAEMIA [None]
  - MALAISE [None]
  - URINARY INCONTINENCE [None]
  - VOMITING [None]
